FAERS Safety Report 5008054-9 (Version None)
Quarter: 2006Q2

REPORT INFORMATION
  Report Type: 
  Country: None (occurrence: None)
  Receive Date: 20060331
  Receipt Date: 20050210
  Transmission Date: 20061013
  Serious: Yes (Hospitalization)
  Sender: FDA-Public Use
  Company Number: US113090

PATIENT
  Age: 71 Year
  Sex: Male

DRUGS (4)
  1. NEULASTA [Suspect]
     Indication: CHEMOTHERAPY
     Dosage: 6MG, 1 IN 1 DAYS, SC
     Route: 058
     Dates: start: 20040801
  2. IRINOTECAN [Concomitant]
  3. FOLIC ACID [Concomitant]
  4. FLUOROURACIL [Concomitant]

REACTIONS (1)
  - FEBRILE NEUTROPENIA [None]
